FAERS Safety Report 7880507-5 (Version None)
Quarter: 2011Q4

REPORT INFORMATION
  Report Type: 
  Country: None (occurrence: None)
  Receive Date: 20111101
  Receipt Date: 20111027
  Transmission Date: 20120403
  Serious: Yes (Death, Hospitalization)
  Sender: FDA-Public Use
  Company Number: PHHY2011BR95500

PATIENT
  Age: 41 Year
  Sex: Female

DRUGS (1)
  1. FORMOTEROL FUMARATE [Suspect]
     Dosage: 1 INHALATION AT NIGHT FOR MORE THAN 1 YEAR

REACTIONS (4)
  - LUNG INFECTION [None]
  - NOSOCOMIAL INFECTION [None]
  - KIDNEY INFECTION [None]
  - COMA [None]
